FAERS Safety Report 10733548 (Version 1)
Quarter: 2015Q1

REPORT INFORMATION
  Report Type: Spontaneous
  Country: None (occurrence: US)
  Receive Date: 20150123
  Receipt Date: 20150123
  Transmission Date: 20150721
  Serious: Yes (Other)
  Sender: FDA-Public Use
  Company Number: US-TEVA-536160USA

PATIENT
  Age: 54 Year
  Sex: Female

DRUGS (1)
  1. AMRIX [Suspect]
     Active Substance: CYCLOBENZAPRINE HYDROCHLORIDE
     Route: 065

REACTIONS (3)
  - Dizziness [Not Recovered/Not Resolved]
  - Abasia [Not Recovered/Not Resolved]
  - Asthenia [Not Recovered/Not Resolved]
